FAERS Safety Report 7196718-0 (Version None)
Quarter: 2010Q4

REPORT INFORMATION
  Report Type: 
  Country: None (occurrence: None)
  Receive Date: 20101223
  Receipt Date: 20101101
  Transmission Date: 20110411
  Serious: No
  Sender: FDA-Public Use
  Company Number: US-AMGEN-USASP2010002849

PATIENT

DRUGS (2)
  1. ENBREL [Suspect]
     Indication: RHEUMATOID ARTHRITIS
     Dates: start: 20100101
  2. PREDNISONE [Concomitant]

REACTIONS (3)
  - DENTAL CARIES [None]
  - RHEUMATOID ARTHRITIS [None]
  - TOOTH INFECTION [None]
